FAERS Safety Report 10452632 (Version 1)
Quarter: 2014Q3

REPORT INFORMATION
  Report Type: Spontaneous
  Country: IT (occurrence: IT)
  Receive Date: 20140915
  Receipt Date: 20140915
  Transmission Date: 20150326
  Serious: Yes (Other)
  Sender: FDA-Public Use
  Company Number: IT-CELGENEUS-083-21660-14090427

PATIENT
  Age: 36 Year
  Sex: Female

DRUGS (5)
  1. OMEPRAZOLO MYLAN [Concomitant]
     Indication: PROPHYLAXIS
     Route: 041
     Dates: start: 20140806, end: 20140806
  2. GRANISETRON B. BRAUN [Concomitant]
     Indication: PROPHYLAXIS
     Route: 041
     Dates: start: 20140806, end: 20140806
  3. ABRAXANE [Suspect]
     Active Substance: PACLITAXEL
     Indication: BREAST CANCER METASTATIC
     Route: 041
     Dates: start: 20140730, end: 20140806
  4. FARGANESSE [Concomitant]
     Indication: PROPHYLAXIS
     Route: 041
     Dates: start: 20140806, end: 20140806
  5. DESAMETASONE FOSFATO [Concomitant]
     Indication: PROPHYLAXIS
     Route: 041
     Dates: start: 20140806, end: 20140806

REACTIONS (3)
  - Cyanosis [Recovered/Resolved]
  - Bronchospasm [Recovered/Resolved]
  - Tremor [Recovered/Resolved]

NARRATIVE: CASE EVENT DATE: 20140806
